FAERS Safety Report 18961630 (Version 3)
Quarter: 2021Q4

REPORT INFORMATION
  Report Type: Other
  Country: US (occurrence: None)
  Receive Date: 20210302
  Receipt Date: 20211117
  Transmission Date: 20220303
  Serious: Yes (Hospitalization)
  Sender: FDA-Public Use
  Company Number: US-ROCHE-2776579

PATIENT
  Age: 48 Year
  Sex: Female
  Weight: 63.560 kg

DRUGS (6)
  1. OCREVUS [Suspect]
     Active Substance: OCRELIZUMAB
     Indication: Primary progressive multiple sclerosis
     Dosage: DATE OF TREATMENT: 13/JUN/2019, 05/FEB/2020,  05/AUG/2020, 06/APR/2021.
     Route: 042
     Dates: start: 20180910
  2. OCREVUS [Suspect]
     Active Substance: OCRELIZUMAB
     Indication: Secondary progressive multiple sclerosis
     Dosage: ONGOING NO
     Route: 042
     Dates: start: 201909, end: 20210426
  3. OCREVUS [Suspect]
     Active Substance: OCRELIZUMAB
     Indication: Relapsing multiple sclerosis
  4. CITALOPRAM HYDROBROMIDE [Concomitant]
     Active Substance: CITALOPRAM HYDROBROMIDE
     Indication: Depression
     Dosage: ONGOING YES
     Route: 048
     Dates: start: 2021
  5. BACLOFEN [Concomitant]
     Active Substance: BACLOFEN
     Indication: Muscle spasticity
     Dosage: ONGOING YES?4 TABS TWICE DAILY
     Route: 048
     Dates: start: 2010
  6. GABAPENTIN [Concomitant]
     Active Substance: GABAPENTIN
     Indication: Neuralgia
     Dosage: 3 TABS TWICE DAILY
     Route: 048

REACTIONS (10)
  - Asthenia [Recovered/Resolved with Sequelae]
  - Multiple sclerosis relapse [Recovered/Resolved]
  - Fall [Unknown]
  - Gait inability [Not Recovered/Not Resolved]
  - COVID-19 [Recovered/Resolved]
  - Headache [Recovered/Resolved]
  - Asthenia [Recovering/Resolving]
  - Neuralgia [Recovering/Resolving]
  - Fatigue [Recovering/Resolving]
  - Sinusitis [Unknown]

NARRATIVE: CASE EVENT DATE: 20201201
